FAERS Safety Report 4800304-4 (Version None)
Quarter: 2005Q4

REPORT INFORMATION
  Report Type: 
  Country: None (occurrence: None)
  Receive Date: 20051012
  Receipt Date: 20051012
  Transmission Date: 20060501
  Serious: Yes (Life-Threatening, Hospitalization)
  Sender: FDA-Public Use
  Company Number: None

PATIENT
  Age: 78 Year
  Sex: Male
  Weight: 80 kg

DRUGS (14)
  1. HEPARIN SODIUM [Suspect]
     Indication: DEEP VEIN THROMBOSIS
     Dosage: IV 800-1000 U/HR
     Route: 042
     Dates: start: 20050821, end: 20050824
  2. BISACODYL [Concomitant]
  3. SENNOSIDES [Concomitant]
  4. FELODIPINE [Concomitant]
  5. METOPROLOL [Concomitant]
  6. PHENAZOPYRIDINE [Concomitant]
  7. ANASTERIDE [Concomitant]
  8. APAP TAB [Concomitant]
  9. CYANCOBALAMIN [Concomitant]
  10. CIPROFLOXACIN [Concomitant]
  11. REGULAR INSULIN [Concomitant]
  12. SSI [Concomitant]
  13. CEFTAZIDIME [Concomitant]
  14. WARFARIN [Concomitant]

REACTIONS (2)
  - HEPARIN-INDUCED THROMBOCYTOPENIA [None]
  - PLATELET COUNT DECREASED [None]
